FAERS Safety Report 5614256-0 (Version None)
Quarter: 2008Q1

REPORT INFORMATION
  Report Type: 
  Country: None (occurrence: None)
  Receive Date: 20080205
  Receipt Date: 20080124
  Transmission Date: 20080703
  Serious: Yes (Hospitalization, Other)
  Sender: FDA-Public Use
  Company Number: DE-PFIZER INC-2007100118

PATIENT
  Sex: Female

DRUGS (4)
  1. NEURONTIN [Suspect]
     Indication: PAIN
     Route: 048
  2. NEURONTIN [Suspect]
     Indication: BACK PAIN
  3. DICLAC [Suspect]
     Indication: BACK PAIN
     Route: 048
  4. NOVAMIN [Suspect]
     Indication: BACK PAIN
     Route: 048

REACTIONS (7)
  - DISTURBANCE IN ATTENTION [None]
  - EPILEPSY [None]
  - GAIT DISTURBANCE [None]
  - MEMORY IMPAIRMENT [None]
  - MENTAL DISORDER DUE TO A GENERAL MEDICAL CONDITION [None]
  - SPEECH DISORDER [None]
  - SYNCOPE [None]
